FAERS Safety Report 19952477 (Version 2)
Quarter: 2021Q4

REPORT INFORMATION
  Report Type: Report from Study
  Country: US (occurrence: US)
  Receive Date: 20211013
  Receipt Date: 20211029
  Transmission Date: 20220303
  Serious: Yes (Other)
  Sender: FDA-Public Use
  Company Number: NVSC2021US230893

PATIENT
  Age: 56 Year
  Sex: Male

DRUGS (2)
  1. ENTRESTO [Suspect]
     Active Substance: SACUBITRIL\VALSARTAN
     Indication: Product used for unknown indication
     Dosage: 50 MG (24/26 MG), BID
     Route: 048
     Dates: start: 20210809
  2. ENTRESTO [Suspect]
     Active Substance: SACUBITRIL\VALSARTAN
     Dosage: 100 MG, BID (49/51MG)
     Route: 048

REACTIONS (13)
  - Fall [Recovering/Resolving]
  - Road traffic accident [Recovering/Resolving]
  - Multiple fractures [Recovering/Resolving]
  - Upper limb fracture [Recovering/Resolving]
  - Clavicle fracture [Recovering/Resolving]
  - Ligament sprain [Recovering/Resolving]
  - Wound [Recovering/Resolving]
  - Scar [Recovering/Resolving]
  - Muscle strain [Recovering/Resolving]
  - Hypersensitivity [Unknown]
  - Allergy to animal [Unknown]
  - Hypotension [Unknown]
  - Decreased activity [Unknown]

NARRATIVE: CASE EVENT DATE: 20210916
